FAERS Safety Report 6553597-X (Version None)
Quarter: 2010Q1

REPORT INFORMATION
  Report Type: 
  Country: None (occurrence: None)
  Receive Date: 20100127
  Receipt Date: 20100119
  Transmission Date: 20100710
  Serious: Yes (Other)
  Sender: FDA-Public Use
  Company Number: GB-ASTRAZENECA-2010SE02445

PATIENT
  Age: 72 Year
  Sex: Female

DRUGS (9)
  1. OMEPRAZOLE [Suspect]
     Indication: GASTROOESOPHAGEAL REFLUX DISEASE
     Dates: start: 20091014, end: 20091216
  2. ASPIRIN [Concomitant]
     Route: 048
  3. CARDURA [Concomitant]
  4. FRUSEMIDE [Concomitant]
     Route: 048
  5. GALFER [Concomitant]
     Route: 048
  6. IRBESARTAN [Concomitant]
     Route: 048
  7. LEVOTHYROXINE SODIUM [Concomitant]
     Route: 048
  8. SIMVASTATIN [Concomitant]
     Route: 048
  9. SOTALOL HYDROCHLORIDE [Concomitant]
     Route: 048

REACTIONS (3)
  - PROTEINURIA [None]
  - PYURIA [None]
  - TUBULOINTERSTITIAL NEPHRITIS [None]
